FAERS Safety Report 12990957 (Version 1)
Quarter: 2016Q4

REPORT INFORMATION
  Report Type: Spontaneous
  Country: US (occurrence: US)
  Receive Date: 20161130
  Receipt Date: 20161130
  Transmission Date: 20170207
  Serious: Yes (Other)
  Sender: FDA-Public Use
  Company Number: None

PATIENT
  Age: 39 Year
  Sex: Male
  Weight: 63.7 kg

DRUGS (14)
  1. BACLOFEN. [Concomitant]
     Active Substance: BACLOFEN
  2. LACTULOSE. [Concomitant]
     Active Substance: LACTULOSE
  3. LEVETIRACETAM. [Concomitant]
     Active Substance: LEVETIRACETAM
  4. MIRALAX [Concomitant]
     Active Substance: POLYETHYLENE GLYCOL 3350
  5. PYRIDOXINE [Concomitant]
     Active Substance: PYRIDOXINE
  6. OLANZAPINE. [Concomitant]
     Active Substance: OLANZAPINE
  7. CHOLECALCIFEROL [Concomitant]
     Active Substance: CHOLECALCIFEROL
  8. L-THYROIXINE [Concomitant]
  9. PRAVASTATIN. [Concomitant]
     Active Substance: PRAVASTATIN
  10. CELECOXIB. [Concomitant]
     Active Substance: CELECOXIB
  11. LAMOTRIGINE. [Concomitant]
     Active Substance: LAMOTRIGINE
  12. BACTRIM [Suspect]
     Active Substance: SULFAMETHOXAZOLE\TRIMETHOPRIM
     Indication: URINARY TRACT INFECTION
     Dosage: OTHER ROUTE:GASTROSTOMY; BID; 1 DF?
     Dates: start: 20160927, end: 20160930
  13. LORAZEPAM. [Concomitant]
     Active Substance: LORAZEPAM
  14. SIMETHICONE (DIMETHICONE) [Concomitant]
     Active Substance: DIMETHICONE

REACTIONS (2)
  - Haemolytic anaemia [None]
  - Bone marrow failure [None]

NARRATIVE: CASE EVENT DATE: 20160927
